FAERS Safety Report 6272470-8 (Version None)
Quarter: 2009Q3

REPORT INFORMATION
  Report Type: 
  Country: None (occurrence: None)
  Receive Date: 20090717
  Receipt Date: 20090715
  Transmission Date: 20100115
  Serious: Yes (Hospitalization)
  Sender: FDA-Public Use
  Company Number: US-BRISTOL-MYERS SQUIBB COMPANY-14701916

PATIENT
  Age: 59 Year
  Sex: Female

DRUGS (16)
  1. TAXOL [Suspect]
     Indication: BREAST CANCER
     Dosage: 19MAR07-16APR07,27D DISCONTINUED ON 14MAY07
     Route: 042
     Dates: start: 20070319, end: 20070416
  2. CYTOXAN [Suspect]
     Indication: BREAST CANCER
     Route: 042
     Dates: start: 20070122, end: 20070306
  3. ADRIAMYCIN RDF [Suspect]
     Indication: BREAST CANCER
     Route: 042
     Dates: start: 20070122, end: 20070306
  4. NEULASTA [Suspect]
     Indication: BREAST CANCER
     Route: 042
     Dates: start: 20070123, end: 20070307
  5. BEVACIZUMAB [Suspect]
     Indication: BREAST CANCER
     Route: 042
     Dates: start: 20070122, end: 20070416
  6. DARVOCET-N 100 [Concomitant]
     Indication: PAIN
     Route: 048
     Dates: start: 20070104
  7. COREG [Concomitant]
     Indication: HYPERTENSION
     Route: 048
     Dates: start: 20070428
  8. ALDACTONE [Concomitant]
     Indication: DIURETIC THERAPY
     Route: 048
     Dates: start: 20070428
  9. DIAZEPAM [Concomitant]
     Indication: SLEEP DISORDER THERAPY
     Route: 048
     Dates: start: 20070428
  10. K-DUR [Concomitant]
     Indication: MINERAL SUPPLEMENTATION
     Route: 048
     Dates: start: 20070428
  11. LISINOPRIL [Concomitant]
     Dates: start: 20070428
  12. BENZONATATE [Concomitant]
     Indication: COUGH
     Dates: start: 20070428
  13. COMPAZINE [Concomitant]
     Indication: NAUSEA
     Route: 048
     Dates: start: 20070122
  14. BENADRYL [Concomitant]
     Indication: PREMEDICATION
     Route: 042
  15. DECADRON [Concomitant]
     Indication: PREMEDICATION
     Route: 042
     Dates: start: 20070319
  16. ZANTAC [Concomitant]
     Indication: PREMEDICATION
     Route: 042

REACTIONS (2)
  - CARDIAC FAILURE [None]
  - PERICARDIAL EFFUSION [None]
